FAERS Safety Report 12970035 (Version 3)
Quarter: 2017Q1

REPORT INFORMATION
  Report Type: Spontaneous
  Country: GB (occurrence: GB)
  Receive Date: 20161123
  Receipt Date: 20170110
  Transmission Date: 20170428
  Serious: Yes (Hospitalization, Other)
  Sender: FDA-Public Use
  Company Number: GB-PFIZER INC-2016539833

PATIENT
  Age: 70 Year
  Sex: Male

DRUGS (3)
  1. OMEPRAZOLE. [Interacting]
     Active Substance: OMEPRAZOLE
     Dosage: UNK
  2. METHOTREXATE SODIUM. [Suspect]
     Active Substance: METHOTREXATE SODIUM
     Indication: ARTHRITIS
     Dosage: 20 MG, WEEKLY
     Route: 048
     Dates: start: 19860101
  3. NAPROXEN. [Interacting]
     Active Substance: NAPROXEN
     Dosage: UNK

REACTIONS (3)
  - Pyelonephritis [Unknown]
  - Drug interaction [Unknown]
  - Immunosuppression [Recovering/Resolving]

NARRATIVE: CASE EVENT DATE: 20161001
